FAERS Safety Report 6122938-X (Version None)
Quarter: 2009Q1

REPORT INFORMATION
  Report Type: 
  Country: None (occurrence: None)
  Receive Date: 20090318
  Receipt Date: 20080515
  Transmission Date: 20090719
  Serious: No
  Sender: FDA-Public Use
  Company Number: US-AMGEN-KDL279896

PATIENT
  Sex: Male

DRUGS (4)
  1. NEULASTA [Suspect]
     Indication: CHEMOTHERAPY
     Dates: start: 20080328
  2. RITUXAN [Concomitant]
  3. CYTOXAN [Concomitant]
  4. FLUDARA [Concomitant]

REACTIONS (1)
  - PYREXIA [None]
